FAERS Safety Report 9416477 (Version 1)
Quarter: 2013Q3

REPORT INFORMATION
  Report Type: Spontaneous
  Country: US (occurrence: US)
  Receive Date: 20130724
  Receipt Date: 20130724
  Transmission Date: 20140515
  Serious: Yes (Other)
  Sender: FDA-Public Use
  Company Number: PHEH2013US015305

PATIENT
  Age: 71 Year
  Sex: Female
  Weight: 58.96 kg

DRUGS (14)
  1. DIOVAN [Suspect]
     Indication: BLOOD PRESSURE
     Dosage: UNK UKN, UNK
     Dates: start: 201301
  2. CARVEDILOL [Suspect]
     Indication: BLOOD PRESSURE
     Dosage: 25 MG, UNK
     Dates: end: 201303
  3. BABY ASPIRIN [Suspect]
     Indication: ANTICOAGULANT THERAPY
     Dosage: 81 MG, ONCE A DAY
     Route: 048
     Dates: start: 201303
  4. XARELTO [Suspect]
     Indication: ATRIAL FIBRILLATION
     Dosage: 1 DF, (20 MG) ONCE A DAY
     Route: 048
     Dates: start: 201303
  5. XARELTO [Suspect]
     Indication: CEREBROVASCULAR ACCIDENT
  6. SPIRIVA [Concomitant]
     Indication: LUNG DISORDER
     Dosage: UNK UKN, UNK
  7. FLONASE [Concomitant]
     Indication: LUNG DISORDER
     Dosage: UNK UKN, UNK
     Route: 045
  8. DIAZEPAM [Concomitant]
     Indication: SLEEP DISORDER
     Dosage: 1 DF, (2,5 MG) DAILY
     Route: 048
  9. ATORVASTATIN [Concomitant]
     Indication: BLOOD CHOLESTEROL ABNORMAL
     Dosage: 1 DF, (10 MG) DAILY
     Route: 048
  10. ZETIA [Concomitant]
     Indication: BLOOD CHOLESTEROL ABNORMAL
  11. NEXUM [Concomitant]
     Indication: HIATUS HERNIA
     Dosage: 1 DF, (40 MG) DAILY
     Route: 048
  12. ZIAC                               /01166101/ [Concomitant]
     Indication: BLOOD PRESSURE
     Dosage: 1 DF, DAILY
     Route: 048
  13. LABETALOL [Concomitant]
     Indication: BLOOD PRESSURE
     Dosage: 1 DF, (300 MG) DAILY
     Route: 048
  14. CATAPRES                                /UNK/ [Concomitant]
     Indication: BLOOD PRESSURE
     Dosage: 1 DF, (0,2 MG) QMO
     Route: 062

REACTIONS (10)
  - Melaena [Not Recovered/Not Resolved]
  - Dyspnoea [Not Recovered/Not Resolved]
  - Feeling abnormal [Not Recovered/Not Resolved]
  - Pain in extremity [Not Recovered/Not Resolved]
  - Gastrointestinal disorder [Not Recovered/Not Resolved]
  - Fear [Not Recovered/Not Resolved]
  - Nausea [Not Recovered/Not Resolved]
  - Dizziness [Not Recovered/Not Resolved]
  - Concomitant disease progression [Not Recovered/Not Resolved]
  - Abdominal pain upper [Recovered/Resolved]
